FAERS Safety Report 22851467 (Version 2)
Quarter: 2023Q4

REPORT INFORMATION
  Report Type: Report from Study
  Country: US (occurrence: US)
  Receive Date: 20230822
  Receipt Date: 20231129
  Transmission Date: 20240109
  Serious: Yes (Life-Threatening, Hospitalization, Other)
  Sender: FDA-Public Use
  Company Number: US-ARGENX-2023-ARGX-US002797

PATIENT

DRUGS (1)
  1. VYVGART [Suspect]
     Active Substance: EFGARTIGIMOD ALFA-FCAB
     Indication: Myasthenia gravis
     Dosage: 10 MG/KG
     Route: 042

REACTIONS (6)
  - Respiratory distress [Unknown]
  - Myasthenia gravis crisis [Unknown]
  - Fall [Unknown]
  - Agitation [Unknown]
  - Fall [Unknown]
  - Eye injury [Unknown]

NARRATIVE: CASE EVENT DATE: 20230801
